FAERS Safety Report 12563032 (Version 1)
Quarter: 2016Q3

REPORT INFORMATION
  Report Type: Spontaneous
  Country: US (occurrence: US)
  Receive Date: 20160715
  Receipt Date: 20160715
  Transmission Date: 20161109
  Serious: No
  Sender: FDA-Public Use
  Company Number: US-BEH-2016071207

PATIENT
  Age: 64 Year
  Sex: Female
  Weight: 71.2 kg

DRUGS (17)
  1. EPIPEN [Concomitant]
     Active Substance: EPINEPHRINE
  2. BREO ELLIPTA [Concomitant]
     Active Substance: FLUTICASONE FUROATE\VILANTEROL TRIFENATATE
  3. PRILOSEC [Concomitant]
     Active Substance: OMEPRAZOLE MAGNESIUM
  4. MULTIPLE VITAMINS [Concomitant]
     Active Substance: VITAMINS
  5. HIZENTRA [Suspect]
     Active Substance: HUMAN IMMUNOGLOBULIN G
     Indication: IMMUNODEFICIENCY COMMON VARIABLE
     Dosage: UNK
     Route: 058
  6. HIZENTRA [Suspect]
     Active Substance: HUMAN IMMUNOGLOBULIN G
     Dosage: UNK
     Route: 058
  7. BUPROPION. [Concomitant]
     Active Substance: BUPROPION
  8. CALCIUM MAGNESIUM + ZINC [Concomitant]
  9. HIZENTRA [Suspect]
     Active Substance: HUMAN IMMUNOGLOBULIN G
     Dosage: 12 G, QW
     Route: 058
  10. ACETAMINOPHEN. [Concomitant]
     Active Substance: ACETAMINOPHEN
  11. LOSARTAN AND HYDROCHLOROTHIAZIDE [Concomitant]
     Active Substance: HYDROCHLOROTHIAZIDE\LOSARTAN POTASSIUM
  12. ASPIRIN. [Concomitant]
     Active Substance: ASPIRIN
  13. TRAZODONE [Concomitant]
     Active Substance: TRAZODONE HYDROCHLORIDE
  14. FISH OIL [Concomitant]
     Active Substance: FISH OIL
  15. TRIAMTERENE AND HYDROCHLOROTHIAZIDE [Concomitant]
     Active Substance: HYDROCHLOROTHIAZIDE\TRIAMTERENE
  16. LEVOTHYROXINE. [Concomitant]
     Active Substance: LEVOTHYROXINE
  17. DIPHENHYDRAMINE. [Concomitant]
     Active Substance: DIPHENHYDRAMINE

REACTIONS (2)
  - Upper respiratory tract infection [Unknown]
  - Sinusitis [Unknown]

NARRATIVE: CASE EVENT DATE: 20160313
